APPROVED DRUG PRODUCT: PREDNISONE
Active Ingredient: PREDNISONE
Strength: 50MG
Dosage Form/Route: TABLET;ORAL
Application: A089984 | Product #001
Applicant: RISING PHARMA HOLDINGS INC
Approved: Jan 12, 1989 | RLD: No | RS: No | Type: DISCN